FAERS Safety Report 24034902 (Version 1)
Quarter: 2024Q2

REPORT INFORMATION
  Report Type: Spontaneous
  Country: US (occurrence: None)
  Receive Date: 20240628
  Receipt Date: 20240628
  Transmission Date: 20240716
  Serious: No
  Sender: FDA-Public Use
  Company Number: None

PATIENT
  Age: 73 Year
  Sex: Female

DRUGS (1)
  1. LENALIDOMIDE [Suspect]
     Active Substance: LENALIDOMIDE
     Indication: Plasma cell myeloma
     Dosage: 25 MG  21 ON 7 OFF ORAL?
     Route: 048
     Dates: start: 202405

REACTIONS (10)
  - Palmar-plantar erythrodysaesthesia syndrome [None]
  - Neuropathy peripheral [None]
  - Oral mucosal erythema [None]
  - Coating in mouth [None]
  - Mouth ulceration [None]
  - Oral pain [None]
  - Irritable bowel syndrome [None]
  - Faeces hard [None]
  - Dyschezia [None]
  - Constipation [None]

NARRATIVE: CASE EVENT DATE: 20240625
